FAERS Safety Report 24680287 (Version 1)
Quarter: 2024Q4

REPORT INFORMATION
  Report Type: Spontaneous
  Country: US (occurrence: US)
  Receive Date: 20241129
  Receipt Date: 20241129
  Transmission Date: 20250115
  Serious: Yes (Other)
  Sender: BRISTOL-MYERS SQUIBB COMPANY
  Company Number: US-BRISTOL-MYERS SQUIBB COMPANY-2024-186804

PATIENT
  Age: 85 Year
  Sex: Male
  Weight: 63.05 kg

DRUGS (16)
  1. POMALYST [Suspect]
     Active Substance: POMALIDOMIDE
     Indication: Plasma cell myeloma
     Dosage: 21 CAPSULES, TAKE 1 CAPSULE BY MOUTH FOR 21 DAYS AND 7 DAYS OFF, ONCE DAILY, WITH OR WITHOUT FOOD. #
     Route: 048
     Dates: start: 20241028, end: 20241125
  2. DARZALEX [Concomitant]
     Active Substance: DARATUMUMAB
     Indication: Plasma cell myeloma
  3. ACYCLOVIR [Concomitant]
     Active Substance: ACYCLOVIR
     Indication: Product used for unknown indication
     Route: 048
  4. ACYCLOVIR [Concomitant]
     Active Substance: ACYCLOVIR
     Dosage: 60 TABLETS- 3 REFILLS?TAKE 1 TABLET TWICE A DAY
     Route: 048
     Dates: start: 20241028
  5. ALLOPURINOL [Concomitant]
     Active Substance: ALLOPURINOL
     Indication: Product used for unknown indication
     Dosage: 1 TABLET DAILY BY MOUTH?30 TABLETS
     Route: 048
     Dates: start: 20240214
  6. AMLODIPINE [Concomitant]
     Active Substance: AMLODIPINE BESYLATE
     Indication: Product used for unknown indication
     Dosage: 1 TABLET PO DAILY
     Route: 048
     Dates: start: 20240216
  7. SIMVASTATIN [Concomitant]
     Active Substance: SIMVASTATIN
     Indication: Product used for unknown indication
     Dosage: 1 PO DAILY
     Route: 048
     Dates: start: 20240216
  8. ASPIRIN [Concomitant]
     Active Substance: ASPIRIN
     Indication: Product used for unknown indication
     Dosage: 1 PO DAILY
     Route: 048
     Dates: start: 20240216
  9. COENZIME Q10 [Concomitant]
     Indication: Product used for unknown indication
     Dosage: 1 PO DAILY
     Route: 048
     Dates: start: 20240216
  10. DEXAMETHASONE [Concomitant]
     Active Substance: DEXAMETHASONE
     Indication: Product used for unknown indication
     Dosage: 40 TABLET 3 REFILLS?TAKE 5 TABLETS BY MOUTH ON DAYS OF TREATMENT
     Route: 048
     Dates: start: 20240826
  11. MORNIFLUMATE [Concomitant]
     Active Substance: MORNIFLUMATE
     Indication: Product used for unknown indication
     Dosage: 1 PO DAILY
     Route: 048
     Dates: start: 20240216
  12. FUROSEMIDE [Concomitant]
     Active Substance: FUROSEMIDE
     Indication: Swelling
     Dosage: 30 TABLETS. TAKE 1 TAB BY MOUTH FOR 3 DAYS FOR SWELLING. TAKE WITH POTASSIUM RICH FOODS.
     Route: 048
     Dates: start: 20240604
  13. ONDANSETRON HYDROCHLORIDE [Concomitant]
     Active Substance: ONDANSETRON HYDROCHLORIDE
     Indication: Nausea
     Dosage: TAKE 1 TAB EVERY 8 HOURS.?30 TABLETS 3 REFILLS
     Dates: start: 20240214
  14. SINGULAIR [Concomitant]
     Active Substance: MONTELUKAST SODIUM
     Indication: Product used for unknown indication
     Dosage: 30 TABLETS?1 PO DAILY START SUNDAY PRIOR TO TREATMENT
     Route: 048
     Dates: start: 20240227
  15. STOOL SOFTENER (DOCUSATE) [Concomitant]
     Active Substance: DOCUSATE
     Indication: Product used for unknown indication
     Dosage: 1-3 PO DAILY PRN
     Dates: start: 20240227
  16. XGEVA [Concomitant]
     Active Substance: DENOSUMAB
     Indication: Product used for unknown indication

REACTIONS (3)
  - Rash [Recovered/Resolved]
  - Diarrhoea [Recovered/Resolved]
  - Neuropathy peripheral [Unknown]
